FAERS Safety Report 6587152 (Version 7)
Quarter: 2024Q2

REPORT INFORMATION
  Report Type: Report from Study
  Country: JP (occurrence: JP)
  Receive Date: 20080318
  Receipt Date: 20240626
  Transmission Date: 20240715
  Serious: Yes (Hospitalization)
  Sender: FDA-Public Use
  Company Number: JP-GILEAD-2008-0015589

PATIENT
  Age: 35 Year
  Sex: Male

DRUGS (11)
  1. TENOFOVIR DISOPROXIL FUMARATE [Suspect]
     Active Substance: TENOFOVIR DISOPROXIL FUMARATE
     Indication: HIV infection
     Dosage: 300 MG, QD
     Route: 048
     Dates: start: 20050330, end: 20080215
  2. EPIVIR [Suspect]
     Active Substance: LAMIVUDINE
     Indication: HIV infection
     Dosage: 300 MG, QD
     Route: 048
     Dates: start: 20050330, end: 20080215
  3. NORVIR [Suspect]
     Active Substance: RITONAVIR
     Indication: HIV infection
     Dosage: 100 MG, QD
     Route: 048
     Dates: start: 20050330, end: 20080215
  4. NORVIR [Suspect]
     Active Substance: RITONAVIR
     Dosage: 200 MG
     Route: 048
     Dates: start: 20080216
  5. PEGINTERFERON ALFA-2B [Suspect]
     Active Substance: PEGINTERFERON ALFA-2B
     Indication: Hepatitis C
     Dosage: 0.4 ML, Q1WK
     Route: 058
     Dates: start: 20051004, end: 20070313
  6. REYATAZ [Suspect]
     Active Substance: ATAZANAVIR SULFATE
     Indication: HIV infection
     Dosage: 300 MG, QD
     Route: 048
     Dates: start: 20050330, end: 20080215
  7. RECOMBINATE [Concomitant]
     Active Substance: ANTIHEMOPHILIC FACTOR, HUMAN RECOMBINANT
     Indication: Factor VIII deficiency
     Dosage: 1000 IU
     Dates: start: 20050330, end: 20070720
  8. RIBAVIRIN [Concomitant]
     Active Substance: RIBAVIRIN
     Indication: Hepatitis C
     Dosage: 200 MG
     Dates: start: 20051210, end: 20070320
  9. LAFUTIDINE [Concomitant]
     Active Substance: LAFUTIDINE
     Indication: Gastrooesophageal reflux disease
     Dosage: 10 MG
     Dates: start: 20051210, end: 20080215
  10. RABEPRAZOLE SODIUM [Concomitant]
     Active Substance: RABEPRAZOLE SODIUM
     Indication: Varices oesophageal
     Dosage: 20 MG
     Dates: start: 20050716, end: 20051016
  11. RABEPRAZOLE SODIUM [Concomitant]
     Active Substance: RABEPRAZOLE SODIUM
     Dosage: 10 MG
     Dates: start: 20051017, end: 20051210

REACTIONS (5)
  - Oesophageal varices haemorrhage [Not Recovered/Not Resolved]
  - Lipoatrophy [Not Recovered/Not Resolved]
  - Blood bilirubin increased [Recovered/Resolved]
  - White blood cell count decreased [Not Recovered/Not Resolved]
  - Platelet count decreased [Not Recovered/Not Resolved]

NARRATIVE: CASE EVENT DATE: 20050330
